FAERS Safety Report 5922169-X (Version None)
Quarter: 2008Q4

REPORT INFORMATION
  Report Type: 
  Country: None (occurrence: None)
  Receive Date: 20081017
  Receipt Date: 20081009
  Transmission Date: 20090506
  Serious: Yes (Hospitalization)
  Sender: FDA-Public Use
  Company Number: CH-ASTRAZENECA-2008PK02240

PATIENT
  Age: 18062 Day
  Sex: Female
  Weight: 66 kg

DRUGS (9)
  1. ATACAND [Suspect]
     Indication: HYPERTENSION
     Route: 048
     Dates: start: 20080905, end: 20080930
  2. BISOPROLOL FUMARATE [Suspect]
     Indication: HYPERTENSION
     Dates: start: 20080101, end: 20080831
  3. RENITEN MITE [Suspect]
     Indication: HYPERTENSION
     Dates: start: 20081001
  4. SEMPREX [Concomitant]
  5. ELTROXIN [Concomitant]
  6. PROGYNORA MITE [Concomitant]
  7. VENTOLIN [Concomitant]
     Dates: start: 20080922
  8. TELFAST [Concomitant]
     Dates: start: 20080922
  9. CALCIUM SANDOZ [Concomitant]
     Dates: start: 20071115

REACTIONS (1)
  - ASTHMA [None]
